FAERS Safety Report 15225597 (Version 2)
Quarter: 2018Q3

REPORT INFORMATION
  Report Type: Report from Study
  Country: FR (occurrence: FR)
  Receive Date: 20180801
  Receipt Date: 20180808
  Transmission Date: 20181010
  Serious: Yes (Other)
  Sender: FDA-Public Use
  Company Number: FR-ROCHE-2158992

PATIENT

DRUGS (1)
  1. RITUXIMAB. [Suspect]
     Active Substance: RITUXIMAB
     Indication: ALVEOLAR PROTEINOSIS
     Route: 042

REACTIONS (9)
  - Off label use [Unknown]
  - Mycobacterial disease carrier [Unknown]
  - Pruritus [Recovered/Resolved]
  - Viral upper respiratory tract infection [Unknown]
  - Rash [Recovered/Resolved]
  - Intentional product use issue [Unknown]
  - Deep vein thrombosis [Unknown]
  - Disturbance in attention [Unknown]
  - Insomnia [Unknown]
